FAERS Safety Report 14257515 (Version 1)
Quarter: 2017Q4

REPORT INFORMATION
  Report Type: Spontaneous
  Country: US (occurrence: US)
  Receive Date: 20171207
  Receipt Date: 20171207
  Transmission Date: 20180321
  Serious: No
  Sender: FDA-Public Use
  Company Number: US-ENDO PHARMACEUTICALS INC-2016SCPR016036

PATIENT
  Age: 67 Year
  Sex: Female

DRUGS (2)
  1. PROPAFENONE HCL ER [Suspect]
     Active Substance: PROPAFENONE
     Indication: ATRIAL FIBRILLATION
     Dosage: 1 DF, BID (1 CAPSULE IN THE MORNING AND 1 CAPSULE IN THE EVENING)
     Route: 048
     Dates: start: 2016
  2. PROPAFENONE HCL ER [Suspect]
     Active Substance: PROPAFENONE
     Dosage: 1 DF, BID (1 CAPSULE IN THE MORNING AND 1 CAPSULE IN THE EVENING)
     Route: 048

REACTIONS (1)
  - Urticaria [Recovered/Resolved]

NARRATIVE: CASE EVENT DATE: 201610
